FAERS Safety Report 4290381-4 (Version None)
Quarter: 2004Q1

REPORT INFORMATION
  Report Type: 
  Country: None (occurrence: None)
  Receive Date: 20040209
  Receipt Date: 20040202
  Transmission Date: 20041129
  Serious: Yes (Hospitalization)
  Sender: FDA-Public Use
  Company Number: NSADSS2002040239

PATIENT
  Age: 5 Year
  Sex: Female

DRUGS (1)
  1. TOPAMAX [Suspect]
     Indication: DRUG USE FOR UNKNOWN INDICATION
     Dosage: ORAL
     Route: 048

REACTIONS (13)
  - ACCIDENTAL EXPOSURE [None]
  - BLOOD BICARBONATE DECREASED [None]
  - DRUG TOXICITY [None]
  - DYSKINESIA [None]
  - FEELING ABNORMAL [None]
  - HYPOAESTHESIA [None]
  - MEDICATION ERROR [None]
  - MUSCULOSKELETAL STIFFNESS [None]
  - NYSTAGMUS [None]
  - REPETITIVE SPEECH [None]
  - RESPIRATORY RATE INCREASED [None]
  - SCREAMING [None]
  - SOMNOLENCE [None]
